FAERS Safety Report 16743626 (Version 6)
Quarter: 2020Q3

REPORT INFORMATION
  Report Type: Report from Study
  Country: BR (occurrence: BR)
  Receive Date: 20190827
  Receipt Date: 20200713
  Transmission Date: 20201102
  Serious: Yes (Hospitalization, Other)
  Sender: FDA-Public Use
  Company Number: BR-UCBSA-2019035325

PATIENT
  Age: 57 Year
  Sex: Female
  Weight: 108 kg

DRUGS (30)
  1. CIMZIA [Suspect]
     Active Substance: CERTOLIZUMAB PEGOL
     Indication: RHEUMATOID ARTHRITIS
     Dosage: 200 MILLIGRAM, EV 2 WEEKS(QOW)
     Route: 058
     Dates: start: 201904
  2. AMOXICILLIN. [Suspect]
     Active Substance: AMOXICILLIN
     Indication: EAR INFECTION
     Dosage: UNK
  3. HYDROCHLOROTHIAZIDE. [Concomitant]
     Active Substance: HYDROCHLOROTHIAZIDE
     Indication: HYPERTENSION
     Dosage: 25 MILLIGRAM, ONCE DAILY (QD)
     Route: 048
  4. AZITROMICINA [Concomitant]
     Active Substance: AZITHROMYCIN DIHYDRATE
     Indication: EAR INFECTION
  5. BUDESONIDA [Concomitant]
     Active Substance: BUDESONIDE
     Indication: ASTHMA
  6. SALBUTAMOL [Concomitant]
     Active Substance: ALBUTEROL
     Indication: ASTHMA
  7. AZITROMICINA [Concomitant]
     Active Substance: AZITHROMYCIN DIHYDRATE
     Indication: INFECTION
     Dosage: 500 MILLIGRAM, ONCE DAILY (QD)
     Route: 048
     Dates: start: 20190811
  8. FORMOTEROL [Concomitant]
     Active Substance: FORMOTEROL
     Indication: APNOEA
  9. SALBUTAMOL [Concomitant]
     Active Substance: ALBUTEROL
     Indication: APNOEA
  10. PREDNISOLON [PREDNISOLONE SODIUM PHOSPHATE] [Concomitant]
     Indication: HYPERSENSITIVITY
     Dosage: 20 MILLIGRAM, 2X/DAY (BID)
     Route: 048
     Dates: start: 20190715
  11. LEVOTIROXINA [LEVOTHYROXINE] [Concomitant]
     Indication: THYROID DISORDER
     Dosage: 100 MILLIGRAM, ONCE DAILY (QD)
     Route: 048
  12. ALENIA [BUDESONIDE;FORMOTEROL FUMARATE] [Concomitant]
     Active Substance: BUDESONIDE\FORMOTEROL FUMARATE
     Indication: DYSPNOEA
     Dosage: 400 MILLIGRAM, 2X/DAY (BID)
  13. LEVOFLOXACINA [Concomitant]
     Active Substance: LEVOFLOXACIN
     Indication: PNEUMONIA
     Dosage: 500 MILLIGRAM, ONCE DAILY (QD)
     Route: 048
     Dates: start: 20190720, end: 20190730
  14. PREDNISONA [Concomitant]
     Active Substance: PREDNISONE
     Indication: ASTHMA
  15. SERTRALINA [SERTRALINE] [Concomitant]
     Active Substance: SERTRALINE HYDROCHLORIDE
     Indication: DEPRESSION
     Dosage: UNK
     Route: 048
  16. AEROFRIN [Concomitant]
     Indication: MUSCLE SPASMS
     Dosage: 100 MILLIGRAM, 2X/DAY (BID)
     Route: 045
  17. FORMOTEROL [Concomitant]
     Active Substance: FORMOTEROL
     Indication: ASTHMA
  18. HIDROCLOROTIAZIDA [Concomitant]
     Active Substance: HYDROCHLOROTHIAZIDE
     Indication: HYPERTENSION
     Dosage: UNK
     Route: 048
  19. CODEINE PHOSPHATE;PARACETAMOL [Concomitant]
     Active Substance: ACETAMINOPHEN\CODEINE PHOSPHATE
     Indication: PAIN
     Dosage: UNK
     Route: 048
  20. CIMZIA [Suspect]
     Active Substance: CERTOLIZUMAB PEGOL
     Dosage: 400 MILLIGRAM, EV 4 WEEKS
     Route: 058
     Dates: end: 201907
  21. LOSARTAN. [Concomitant]
     Active Substance: LOSARTAN
     Indication: HYPERTENSION
     Dosage: 50 MILLIGRAM, 2X/DAY (BID)
     Route: 048
  22. PANTOPRAZOLE [Concomitant]
     Active Substance: PANTOPRAZOLE
     Indication: REFLUX GASTRITIS
     Dosage: UNK
     Route: 048
  23. NEOMICINA [NEOMYCIN SULFATE] [Concomitant]
     Indication: ANTIBIOTIC THERAPY
     Dosage: UNK
     Route: 061
     Dates: start: 20190730
  24. METFORMINA [METFORMIN HYDROCHLORIDE] [Concomitant]
     Active Substance: METFORMIN HYDROCHLORIDE
     Indication: DIABETES MELLITUS
     Dosage: UNK
     Route: 048
  25. DIAZEPAM. [Concomitant]
     Active Substance: DIAZEPAM
     Indication: DEPRESSION
     Dosage: UNK
     Route: 048
  26. DOMPERIDONA [Concomitant]
     Indication: REFLUX GASTRITIS
     Dosage: UNK
     Route: 048
  27. BUDESONIDA [Concomitant]
     Active Substance: BUDESONIDE
     Indication: APNOEA
  28. PREDNISONA [Concomitant]
     Active Substance: PREDNISONE
     Indication: APNOEA
  29. VITAMIN D [ERGOCALCIFEROL] [Concomitant]
     Active Substance: ERGOCALCIFEROL
     Indication: REFLUX GASTRITIS
  30. VITAMIN D [ERGOCALCIFEROL] [Concomitant]
     Active Substance: ERGOCALCIFEROL
     Indication: GASTRITIS

REACTIONS (18)
  - Arthralgia [Not Recovered/Not Resolved]
  - Dyspnoea [Not Recovered/Not Resolved]
  - Atrophy [Not Recovered/Not Resolved]
  - Asthma [Not Recovered/Not Resolved]
  - Skin laceration [Recovering/Resolving]
  - Muscle rupture [Not Recovered/Not Resolved]
  - Pain in extremity [Not Recovered/Not Resolved]
  - Stress [Not Recovered/Not Resolved]
  - Gastric disorder [Not Recovered/Not Resolved]
  - Urinary tract infection [Not Recovered/Not Resolved]
  - Groin pain [Not Recovered/Not Resolved]
  - Pain [Not Recovered/Not Resolved]
  - Pulmonary mass [Not Recovered/Not Resolved]
  - Back pain [Not Recovered/Not Resolved]
  - Ear infection [Not Recovered/Not Resolved]
  - Gait disturbance [Not Recovered/Not Resolved]
  - Weight decreased [Unknown]
  - Pneumonia [Recovered/Resolved]

NARRATIVE: CASE EVENT DATE: 20190703
